FAERS Safety Report 20406951 (Version 2)
Quarter: 2022Q2

REPORT INFORMATION
  Report Type: Spontaneous
  Country: JP (occurrence: JP)
  Receive Date: 20220131
  Receipt Date: 20220601
  Transmission Date: 20220720
  Serious: No
  Sender: FDA-Public Use
  Company Number: JP-GLAXOSMITHKLINE-JP2022JPN010522

PATIENT

DRUGS (7)
  1. SOTROVIMAB [Suspect]
     Active Substance: SOTROVIMAB
     Indication: COVID-19
     Dosage: 500 MG/DAY
     Route: 042
     Dates: start: 20220109
  2. RITODRINE [Suspect]
     Active Substance: RITODRINE
     Indication: Premature labour
     Dosage: 20 MG/DAY
     Route: 048
  3. DIMEMORFAN [Suspect]
     Active Substance: DIMEMORFAN
     Indication: COVID-19
     Dosage: 30 MG/DAY
     Route: 048
     Dates: start: 20220108
  4. BISOLVON [Suspect]
     Active Substance: BROMHEXINE HYDROCHLORIDE
     Indication: COVID-19
     Dosage: 12 MG/DAY
     Route: 048
     Dates: start: 20220108
  5. ACETAMINOPHEN [Suspect]
     Active Substance: ACETAMINOPHEN
     Indication: COVID-19
     Dosage: 400 MG/DAY
     Route: 048
     Dates: start: 20220108
  6. MAGNESIUM OXIDE [Suspect]
     Active Substance: MAGNESIUM OXIDE
     Dosage: UNK
  7. HEPARIN CALCIUM [Suspect]
     Active Substance: HEPARIN CALCIUM
     Indication: Thrombosis prophylaxis
     Dosage: 10000U/DAY
     Route: 058
     Dates: start: 20220108

REACTIONS (1)
  - Exposure during pregnancy [Unknown]
